FAERS Safety Report 19618144 (Version 1)
Quarter: 2021Q3

REPORT INFORMATION
  Report Type: Spontaneous
  Country: US (occurrence: US)
  Receive Date: 20210727
  Receipt Date: 20210727
  Transmission Date: 20211014
  Serious: No
  Sender: FDA-Public Use
  Company Number: US-ROCHE-2736234

PATIENT
  Age: 76 Year
  Sex: Female

DRUGS (1)
  1. XELODA [Suspect]
     Active Substance: CAPECITABINE
     Indication: PRODUCT USED FOR UNKNOWN INDICATION
     Route: 048
     Dates: start: 202011

REACTIONS (9)
  - Dry mouth [Unknown]
  - Oral mucosal blistering [Unknown]
  - Dry skin [Unknown]
  - Cough [Unknown]
  - Ligament sprain [Unknown]
  - Fall [Unknown]
  - Muscle spasms [Unknown]
  - Palmar-plantar erythrodysaesthesia syndrome [Unknown]
  - Oral pain [Unknown]

NARRATIVE: CASE EVENT DATE: 20201211
